FAERS Safety Report 24000921 (Version 2)
Quarter: 2024Q3

REPORT INFORMATION
  Report Type: Report from Study
  Country: US (occurrence: US)
  Receive Date: 20240621
  Receipt Date: 20240731
  Transmission Date: 20241017
  Serious: No
  Sender: ALEXION PHARMACEUTICALS
  Company Number: US-AstraZeneca-CH-00647274A

PATIENT
  Sex: Female

DRUGS (1)
  1. SOLIRIS [Suspect]
     Active Substance: ECULIZUMAB
     Indication: Product used for unknown indication
     Dosage: UNK
     Route: 065

REACTIONS (11)
  - Headache [Unknown]
  - Pyrexia [Unknown]
  - Sinus disorder [Unknown]
  - General physical condition abnormal [Unknown]
  - Asthenia [Unknown]
  - Back pain [Unknown]
  - Sciatica [Unknown]
  - Appetite disorder [Unknown]
  - Throat irritation [Unknown]
  - Nasal pruritus [Unknown]
  - Rhinorrhoea [Unknown]
